FAERS Safety Report 7527135-9 (Version None)
Quarter: 2011Q2

REPORT INFORMATION
  Report Type: 
  Country: None (occurrence: None)
  Receive Date: 20110607
  Receipt Date: 20110530
  Transmission Date: 20111010
  Serious: Yes (Hospitalization, Other)
  Sender: FDA-Public Use
  Company Number: FR-BIOGENIDEC-2011BI000671

PATIENT
  Age: 50 Year
  Sex: Female
  Weight: 55 kg

DRUGS (5)
  1. LIORESAL [Concomitant]
     Indication: MUSCLE SPASTICITY
     Dates: start: 20100901
  2. ALFUZOSIN HCL [Concomitant]
     Indication: URINARY TRACT DISORDER
     Dates: start: 20080101
  3. ZOLOFT [Concomitant]
     Indication: ANXIETY
     Dates: start: 20080101
  4. TYSABRI [Suspect]
     Indication: MULTIPLE SCLEROSIS
     Route: 042
     Dates: start: 20080908
  5. ZOMIG [Concomitant]
     Indication: HEADACHE
     Dates: start: 20080101

REACTIONS (1)
  - ENDOMETRIAL CANCER [None]
